FAERS Safety Report 7099086-8 (Version None)
Quarter: 2010Q4

REPORT INFORMATION
  Report Type: 
  Country: None (occurrence: None)
  Receive Date: 20101112
  Receipt Date: 20101110
  Transmission Date: 20110411
  Serious: Yes (Hospitalization)
  Sender: FDA-Public Use
  Company Number: A0845439A

PATIENT
  Age: 76 Year
  Sex: Female

DRUGS (1)
  1. ADVAIR DISKUS 100/50 [Suspect]
     Route: 055

REACTIONS (5)
  - ADVERSE EVENT [None]
  - COMPUTERISED TOMOGRAM [None]
  - COUGH [None]
  - DYSPNOEA [None]
  - LEUKAEMIA [None]
